FAERS Safety Report 18744663 (Version 1)
Quarter: 2021Q1

REPORT INFORMATION
  Report Type: Spontaneous
  Country: KR (occurrence: KR)
  Receive Date: 20210115
  Receipt Date: 20210115
  Transmission Date: 20210419
  Serious: Yes (Other)
  Sender: FDA-Public Use
  Company Number: KR-SCIEGEN-2021SCILIT00007

PATIENT
  Age: 72 Year
  Sex: Male

DRUGS (5)
  1. ACETAZOLAMIDE. [Interacting]
     Active Substance: ACETAZOLAMIDE
     Indication: OCULAR RETROBULBAR HAEMORRHAGE
     Dosage: 2 TABLETS OF 250 MG
     Route: 065
  2. RIVAROXABAN [Concomitant]
     Active Substance: RIVAROXABAN
     Indication: MYOCARDIAL ISCHAEMIA
     Route: 065
  3. BRIMONIDINE [Interacting]
     Active Substance: BRIMONIDINE TARTRATE
     Indication: OCULAR RETROBULBAR HAEMORRHAGE
     Route: 065
  4. CLOPIDOGREL [Suspect]
     Active Substance: CLOPIDOGREL BISULFATE
     Indication: MYOCARDIAL ISCHAEMIA
     Route: 065
  5. ASPIRIN [ACETYLSALICYLIC ACID] [Suspect]
     Active Substance: ASPIRIN
     Indication: MYOCARDIAL ISCHAEMIA
     Route: 065

REACTIONS (1)
  - Ocular retrobulbar haemorrhage [Unknown]
